FAERS Safety Report 18873339 (Version 1)
Quarter: 2021Q1

REPORT INFORMATION
  Report Type: Spontaneous
  Country: ES (occurrence: ES)
  Receive Date: 20210210
  Receipt Date: 20210210
  Transmission Date: 20210420
  Serious: Yes (Hospitalization, Other)
  Sender: FDA-Public Use
  Company Number: ES-AMGEN-ESPSP2021017680

PATIENT

DRUGS (9)
  1. BORTEZOMIB. [Concomitant]
     Active Substance: BORTEZOMIB
     Dosage: UNK
     Route: 065
  2. MELPHALAN. [Concomitant]
     Active Substance: MELPHALAN
     Dosage: 200 MILLIGRAM/SQ. METER
     Route: 042
  3. ACYCLOVIR [ACICLOVIR] [Concomitant]
     Active Substance: ACYCLOVIR
     Indication: ANTIBIOTIC PROPHYLAXIS
     Dosage: UNK
     Route: 065
  4. LEVOFLOXACIN. [Concomitant]
     Active Substance: LEVOFLOXACIN
     Indication: INFECTION PROPHYLAXIS
     Dosage: UNK
     Route: 065
  5. FLUCONAZOLE. [Concomitant]
     Active Substance: FLUCONAZOLE
     Indication: ANTIBIOTIC PROPHYLAXIS
     Dosage: UNK
     Route: 065
  6. MEROPENEM. [Concomitant]
     Active Substance: MEROPENEM
     Indication: ANTIBIOTIC THERAPY
     Dosage: 1 G, TID
     Route: 042
  7. FILGRASTIM [Suspect]
     Active Substance: FILGRASTIM
     Indication: PROPHYLAXIS
     Dosage: 5 MICROGRAM/KILOGRAM PER DAY
     Route: 065
  8. CEFTRIAXONE. [Concomitant]
     Active Substance: CEFTRIAXONE
     Indication: ANTIBIOTIC PROPHYLAXIS
     Dosage: 1 G/DAY
     Route: 065
  9. PENTAMIDINE [Concomitant]
     Active Substance: PENTAMIDINE
     Indication: ANTIBIOTIC PROPHYLAXIS
     Dosage: UNK
     Route: 065

REACTIONS (14)
  - Neutropenia [Unknown]
  - Febrile neutropenia [Unknown]
  - Clostridium difficile colitis [Unknown]
  - Engraftment syndrome [Unknown]
  - Thrombocytopenia [Unknown]
  - Nausea [Unknown]
  - Lung infiltration [Unknown]
  - Mucosal inflammation [Unknown]
  - Diarrhoea [Unknown]
  - Vomiting [Unknown]
  - Rash [Unknown]
  - Pneumonia respiratory syncytial viral [Unknown]
  - Pyrexia [Unknown]
  - Staphylococcal bacteraemia [Unknown]
